FAERS Safety Report 6755813-8 (Version None)
Quarter: 2010Q2

REPORT INFORMATION
  Report Type: 
  Country: None (occurrence: None)
  Receive Date: 20100604
  Receipt Date: 20100521
  Transmission Date: 20101027
  Serious: Yes (Hospitalization, Other)
  Sender: FDA-Public Use
  Company Number: US-ASTRAZENECA-2006UW10980

PATIENT
  Age: 22569 Day
  Sex: Female
  Weight: 68.5 kg

DRUGS (24)
  1. SEROQUEL [Suspect]
     Indication: MENTAL DISORDER
     Route: 048
     Dates: start: 20020101, end: 20030101
  2. SEROQUEL [Suspect]
     Indication: DEPRESSION
     Route: 048
     Dates: start: 20020101, end: 20030101
  3. SEROQUEL [Suspect]
     Indication: PARANOIA
     Route: 048
     Dates: start: 20020101, end: 20030101
  4. SEROQUEL [Suspect]
     Route: 048
     Dates: start: 20051201
  5. SEROQUEL [Suspect]
     Route: 048
     Dates: start: 20051201
  6. SEROQUEL [Suspect]
     Route: 048
     Dates: start: 20051201
  7. SEROQUEL [Suspect]
     Route: 048
     Dates: start: 20080304
  8. SEROQUEL [Suspect]
     Route: 048
     Dates: start: 20080304
  9. SEROQUEL [Suspect]
     Route: 048
     Dates: start: 20080304
  10. ZYPREXA [Suspect]
     Dates: start: 20000101, end: 20050101
  11. RISPERDAL [Suspect]
     Dates: start: 20020101, end: 20030101
  12. CORGARD [Concomitant]
  13. PAXIL [Concomitant]
  14. DETROL [Concomitant]
  15. HUMALOG [Concomitant]
  16. LIPITOR [Concomitant]
  17. RAMIPRIL [Concomitant]
  18. ASPIRIN [Concomitant]
  19. NORVASC [Concomitant]
  20. K-DUR [Concomitant]
  21. LANTUS [Concomitant]
  22. NOTROSTAT [Concomitant]
  23. TRANDATE [Concomitant]
  24. SOMA [Concomitant]
     Route: 048
     Dates: start: 20080103

REACTIONS (23)
  - ABDOMINAL DISTENSION [None]
  - ABNORMAL LOSS OF WEIGHT [None]
  - ANAEMIA [None]
  - BACK PAIN [None]
  - CEREBROVASCULAR ACCIDENT [None]
  - COSTOVERTEBRAL ANGLE TENDERNESS [None]
  - DIABETES MELLITUS [None]
  - DYSPEPSIA [None]
  - ELECTROCARDIOGRAM QT PROLONGED [None]
  - FLANK PAIN [None]
  - GASTROOESOPHAGEAL REFLUX DISEASE [None]
  - HEADACHE [None]
  - HYPERLIPIDAEMIA [None]
  - HYPERTENSION [None]
  - HYPOAESTHESIA [None]
  - HYPOKALAEMIA [None]
  - MASS [None]
  - NEOPLASM SKIN [None]
  - PANIC ATTACK [None]
  - PULMONARY MASS [None]
  - RENAL FAILURE ACUTE [None]
  - RENAL FAILURE CHRONIC [None]
  - VASCULAR DEMENTIA [None]
